FAERS Safety Report 12909694 (Version 1)
Quarter: 2016Q4

REPORT INFORMATION
  Report Type: Report from Study
  Country: NL (occurrence: NL)
  Receive Date: 20161104
  Receipt Date: 20161104
  Transmission Date: 20170207
  Serious: Yes (Other)
  Sender: FDA-Public Use
  Company Number: NL-CIPLA LTD.-2016NL10056

PATIENT

DRUGS (7)
  1. ZIDOVUDINE. [Suspect]
     Active Substance: ZIDOVUDINE
     Dosage: 300 MG, BID,POST DELIVERY FOR 7 DAYS
     Route: 065
  2. LAMIVUDINE. [Suspect]
     Active Substance: LAMIVUDINE
     Indication: PROPHYLAXIS AGAINST HIV INFECTION
     Dosage: UNK, EVERY 12 HOURS UNTIL DELIVERY
     Route: 065
  3. LAMIVUDINE. [Suspect]
     Active Substance: LAMIVUDINE
     Dosage: 150 MG, BID,FOR 7 DAYS POST DELIVERY
     Route: 065
  4. NEVIRAPINE. [Suspect]
     Active Substance: NEVIRAPINE
     Indication: PROPHYLAXIS AGAINST HIV INFECTION
     Dosage: 200 MG,SINGLE DOSE AT THE ONSET OF LABOUR
     Route: 065
  5. ZIDOVUDINE. [Suspect]
     Active Substance: ZIDOVUDINE
     Indication: PROPHYLAXIS AGAINST HIV INFECTION
     Dosage: 300 MG, BID,FROM 28 AND 14 WEEKS OF GESTATION IN TANZANIA AND ZAMBIA RESPECTIVELY
     Route: 065
  6. ZIDOVUDINE. [Suspect]
     Active Substance: ZIDOVUDINE
     Dosage: UNK, AT THE ONSET OF LABOUR
     Route: 048
  7. PHENYTOIN. [Suspect]
     Active Substance: PHENYTOIN
     Dosage: 184 MG, QD,FROM THE ONSET OF LABOUR FOR 7 DAYS
     Route: 065

REACTIONS (2)
  - Exposure during pregnancy [Unknown]
  - Adverse event [Unknown]
